FAERS Safety Report 7392642-9 (Version None)
Quarter: 2011Q2

REPORT INFORMATION
  Report Type: 
  Country: None (occurrence: None)
  Receive Date: 20110404
  Receipt Date: 20110328
  Transmission Date: 20111010
  Serious: Yes (Hospitalization)
  Sender: FDA-Public Use
  Company Number: US-US-EMD SERONO, INC.-7000032

PATIENT
  Sex: Female
  Weight: 82 kg

DRUGS (8)
  1. REBIF [Suspect]
     Indication: MULTIPLE SCLEROSIS
     Route: 058
     Dates: start: 20080101, end: 20091101
  2. ZANTAC [Concomitant]
  3. ASACOL [Concomitant]
     Indication: COLITIS
  4. VICODIN [Concomitant]
     Indication: PAIN
  5. AMANTADINE HCL [Concomitant]
     Indication: FATIGUE
  6. REBIF [Suspect]
     Route: 058
     Dates: start: 20100414, end: 20100501
  7. EFFEXOR [Concomitant]
     Indication: DEPRESSION
  8. REBIF [Suspect]
     Dates: end: 20110301

REACTIONS (5)
  - SEPSIS [None]
  - INFLAMMATORY BOWEL DISEASE [None]
  - PYREXIA [None]
  - DEVICE RELATED INFECTION [None]
  - CHILLS [None]
